FAERS Safety Report 4484972-5 (Version None)
Quarter: 2004Q3

REPORT INFORMATION
  Report Type: 
  Country: None (occurrence: None)
  Receive Date: 20040921
  Receipt Date: 20040701
  Transmission Date: 20050211
  Serious: Yes (Hospitalization)
  Sender: FDA-Public Use
  Company Number: 163-20785-03090733

PATIENT
  Age: 32 Year
  Sex: Male

DRUGS (2)
  1. THALOMID [Suspect]
     Indication: HIV INFECTION
     Dosage: 20 MG, DAILY, PO
     Route: 048
     Dates: start: 20030523, end: 20030101
  2. THALOMID [Suspect]
     Indication: HIV INFECTION
     Dosage: 20 MG, DAILY, PO
     Route: 048
     Dates: start: 20040409

REACTIONS (3)
  - CHEST PAIN [None]
  - DYSPHAGIA [None]
  - OESOPHAGITIS [None]
